FAERS Safety Report 9234764 (Version 1)
Quarter: 2013Q2

REPORT INFORMATION
  Report Type: Spontaneous
  Country: CA (occurrence: CA)
  Receive Date: 20130416
  Receipt Date: 20130416
  Transmission Date: 20140414
  Serious: Yes (Hospitalization)
  Sender: FDA-Public Use
  Company Number: CA-BAXTER-2013BAX012679

PATIENT
  Sex: Male

DRUGS (1)
  1. DIANEAL PD4 SOLUTION WITH 2.5% DEXTROSE AND 2.5 MEQ/L CALCIUM [Suspect]
     Indication: RENAL FAILURE
     Route: 033
     Dates: start: 201212, end: 201304

REACTIONS (8)
  - Oral infection [Recovered/Resolved]
  - Gastric infection [Recovered/Resolved]
  - Blood pressure increased [Recovered/Resolved]
  - Blood glucose increased [Recovered/Resolved]
  - Aphagia [Recovered/Resolved]
  - Dysphagia [Recovered/Resolved]
  - Peritoneal dialysis complication [Recovering/Resolving]
  - Dysstasia [Recovering/Resolving]
